FAERS Safety Report 16337396 (Version 2)
Quarter: 2019Q3

REPORT INFORMATION
  Report Type: Spontaneous
  Country: PL (occurrence: PL)
  Receive Date: 20190521
  Receipt Date: 20190924
  Transmission Date: 20191004
  Serious: Yes (Hospitalization, Other)
  Sender: FDA-Public Use
  Company Number: PL-PFIZER INC-2019208396

PATIENT
  Age: 14 Year
  Sex: Female

DRUGS (11)
  1. OMNITROPE [Suspect]
     Active Substance: SOMATROPIN
     Indication: TURNER^S SYNDROME
     Dosage: 0.33 TO 0.047 MG/KG DAILY
  2. OESCLIM [Suspect]
     Active Substance: ESTRADIOL
     Dosage: 25 UG, DAILY
  3. L-THYROXINE [LEVOTHYROXINE] [Concomitant]
     Active Substance: LEVOTHYROXINE
     Indication: HYPOTHYROIDISM
     Dosage: UNK (INITIATED WITH MODIFIED DOSES ACCORDING TO HORMONAL RESULTS)
  4. L-THYROXINE [LEVOTHYROXINE] [Concomitant]
     Active Substance: LEVOTHYROXINE
     Dosage: UNK (SUPPRESSED DOSES)
  5. OESCLIM [Suspect]
     Active Substance: ESTRADIOL
     Indication: GROWTH FAILURE
     Dosage: UNK (WAS CONTINUOUSLY INCREASED DURING A YEAR)
  6. GENOTROPIN [Suspect]
     Active Substance: SOMATROPIN
     Indication: TURNER^S SYNDROME
     Dosage: 0.33 TO 0.047 MG/KG DAILY
  7. GENOTROPIN [Suspect]
     Active Substance: SOMATROPIN
     Indication: GROWTH FAILURE
  8. PROGESTERONE. [Concomitant]
     Active Substance: PROGESTERONE
  9. OMNITROPE [Suspect]
     Active Substance: SOMATROPIN
     Indication: GROWTH FAILURE
  10. OESCLIM [Suspect]
     Active Substance: ESTRADIOL
     Indication: OESTROGEN THERAPY
     Dosage: 6.25 UG, DAILY (LOW DOSES 1 X 6.25 UG/DAY)
  11. L-THYROXINE [LEVOTHYROXINE] [Concomitant]
     Active Substance: LEVOTHYROXINE
     Dosage: 75 UG, DAILY

REACTIONS (1)
  - Thyroid cancer [Recovered/Resolved]

NARRATIVE: CASE EVENT DATE: 201301
